FAERS Safety Report 16951207 (Version 1)
Quarter: 2019Q4

REPORT INFORMATION
  Report Type: Spontaneous
  Country: US (occurrence: US)
  Receive Date: 20191023
  Receipt Date: 20191023
  Transmission Date: 20200122
  Serious: No
  Sender: FDA-Public Use
  Company Number: US-MYLANLABS-2019M1096909

PATIENT
  Age: 77 Year
  Sex: Female
  Weight: 81 kg

DRUGS (1)
  1. ESTRADIOL TRANSDERMAL SYSTEM [Suspect]
     Active Substance: ESTRADIOL
     Indication: HORMONE REPLACEMENT THERAPY
     Dosage: ONE WEEKLY
     Route: 062
     Dates: start: 20190914, end: 20190919

REACTIONS (5)
  - Application site erythema [Recovering/Resolving]
  - Fungal infection [Recovering/Resolving]
  - Application site irritation [Recovering/Resolving]
  - Application site pain [Recovering/Resolving]
  - Application site pruritus [Recovering/Resolving]

NARRATIVE: CASE EVENT DATE: 20190914
